FAERS Safety Report 12780319 (Version 2)
Quarter: 2016Q4

REPORT INFORMATION
  Report Type: Spontaneous
  Country: US (occurrence: US)
  Receive Date: 20160926
  Receipt Date: 20161004
  Transmission Date: 20170207
  Serious: Yes (Death, Hospitalization)
  Sender: FDA-Public Use
  Company Number: US-US WORLDMEDS, LLC-USW201609-000641

PATIENT
  Age: 79 Year
  Sex: Female

DRUGS (1)
  1. APOKYN [Suspect]
     Active Substance: APOMORPHINE HYDROCHLORIDE
     Indication: PRODUCT USED FOR UNKNOWN INDICATION
     Route: 058
     Dates: start: 2013

REACTIONS (5)
  - Thrombosis [Recovered/Resolved with Sequelae]
  - Visual acuity reduced [Recovered/Resolved with Sequelae]
  - Sepsis [Fatal]
  - Ischaemic stroke [Recovered/Resolved with Sequelae]
  - Aphasia [Recovered/Resolved with Sequelae]

NARRATIVE: CASE EVENT DATE: 20160908
